FAERS Safety Report 17560865 (Version 5)
Quarter: 2020Q2

REPORT INFORMATION
  Report Type: Report from Study
  Country: DE (occurrence: DE)
  Receive Date: 20200319
  Receipt Date: 20200601
  Transmission Date: 20200713
  Serious: Yes (Hospitalization)
  Sender: FDA-Public Use
  Company Number: NVSC2020DE069845

PATIENT
  Age: 22 Year
  Sex: Female
  Weight: 55 kg

DRUGS (6)
  1. PANTOPRAZOL [Concomitant]
     Active Substance: PANTOPRAZOLE SODIUM
     Indication: GASTRITIS PROPHYLAXIS
     Dosage: 40 MG, QD
     Route: 065
     Dates: start: 20200308, end: 20200309
  2. MAXIM [Concomitant]
     Indication: ORAL CONTRACEPTION
     Dosage: 1 UNK, QD
     Route: 065
     Dates: start: 20110101
  3. VOLTAREN RESINAT [Concomitant]
     Active Substance: DICLOFENAC
     Indication: SPONDYLITIS
     Dosage: UNK
     Route: 065
     Dates: start: 20191126
  4. RITALIN [Concomitant]
     Active Substance: METHYLPHENIDATE HYDROCHLORIDE
     Indication: ATTENTION DEFICIT HYPERACTIVITY DISORDER
     Dosage: 10 MG, QD
     Route: 065
     Dates: start: 20150101
  5. ELVANSE [Concomitant]
     Active Substance: LISDEXAMFETAMINE DIMESYLATE
     Indication: ATTENTION DEFICIT HYPERACTIVITY DISORDER
     Dosage: 30 MG, QD
     Route: 065
     Dates: start: 20191214
  6. SECUKINUMAB. [Suspect]
     Active Substance: SECUKINUMAB
     Indication: AXIAL SPONDYLOARTHRITIS
     Dosage: 150 MG, ONCE/SINGLE
     Route: 058
     Dates: start: 20191209

REACTIONS (1)
  - Diarrhoea haemorrhagic [Recovered/Resolved]

NARRATIVE: CASE EVENT DATE: 20200308
